FAERS Safety Report 7809518 (Version 4)
Quarter: 2019Q3

REPORT INFORMATION
  Report Type: Spontaneous
  Country: CA (occurrence: CA)
  Receive Date: 20110211
  Receipt Date: 20190711
  Transmission Date: 20191005
  Serious: Yes (Death, Hospitalization)
  Sender: FDA-Public Use
  Company Number: CA-JNJFOC-20110201502

PATIENT
  Age: 60 Year
  Sex: Female
  Weight: 61.29 kg

DRUGS (7)
  1. DEXAMETHASONE. [Concomitant]
     Active Substance: DEXAMETHASONE
     Indication: BRAIN OEDEMA
  2. REMICADE [Suspect]
     Active Substance: INFLIXIMAB
     Indication: CROHN^S DISEASE
     Route: 042
     Dates: start: 20040101
  3. REMICADE [Suspect]
     Active Substance: INFLIXIMAB
     Route: 042
     Dates: start: 2012
  4. PENTASA [Concomitant]
     Active Substance: MESALAMINE
     Route: 065
  5. IMURAN [Concomitant]
     Active Substance: AZATHIOPRINE
  6. REMICADE [Suspect]
     Active Substance: INFLIXIMAB
     Indication: RHEUMATOID ARTHRITIS
     Route: 042
     Dates: start: 20031111, end: 201011
  7. REMICADE [Suspect]
     Active Substance: INFLIXIMAB
     Route: 042
     Dates: start: 2004

REACTIONS (5)
  - Death [Fatal]
  - Decreased appetite [Unknown]
  - Lung adenocarcinoma stage IV [Not Recovered/Not Resolved]
  - Weight decreased [Unknown]
  - Diarrhoea [Not Recovered/Not Resolved]

NARRATIVE: CASE EVENT DATE: 20110102
